FAERS Safety Report 25772545 (Version 1)
Quarter: 2025Q3

REPORT INFORMATION
  Report Type: Spontaneous
  Country: US (occurrence: US)
  Receive Date: 20250908
  Receipt Date: 20250908
  Transmission Date: 20251020
  Serious: Yes (Other)
  Sender: COOPERSURGICAL
  Company Number: US-COOPERSURGICAL, INC.-2025CPS006460

PATIENT
  Age: 36 Year
  Sex: Female
  Weight: 97.506 kg

DRUGS (1)
  1. PARAGARD T 380A [Suspect]
     Active Substance: COPPER
     Route: 015
     Dates: start: 20170525

REACTIONS (13)
  - Surgery [Recovered/Resolved]
  - Device breakage [Recovered/Resolved]
  - Foreign body in urogenital tract [Recovered/Resolved]
  - Complication of device removal [Recovered/Resolved]
  - Panic attack [Recovered/Resolved]
  - Postoperative respiratory distress [Recovered/Resolved]
  - Post procedural haemorrhage [Recovered/Resolved]
  - Procedural pain [Recovered/Resolved]
  - Dyspareunia [Not Recovered/Not Resolved]
  - Abnormal uterine bleeding [Unknown]
  - Device dislocation [Recovered/Resolved]
  - Heavy menstrual bleeding [Unknown]
  - Menstruation irregular [Unknown]

NARRATIVE: CASE EVENT DATE: 20250324
